FAERS Safety Report 9264801 (Version 1)
Quarter: 2013Q2

REPORT INFORMATION
  Report Type: Report from Study
  Country: US (occurrence: US)
  Receive Date: 20130501
  Receipt Date: 20130501
  Transmission Date: 20140414
  Serious: Yes (Other)
  Sender: FDA-Public Use
  Company Number: US-ROCHE-640396

PATIENT
  Sex: Female

DRUGS (3)
  1. TRASTUZUMAB [Suspect]
     Indication: BREAST CANCER METASTATIC
     Dosage: INITIAL TREATMENT.
     Route: 042
  2. TRASTUZUMAB [Suspect]
     Route: 042
  3. IXABEPILONE [Suspect]
     Indication: BREAST CANCER METASTATIC
     Dosage: 3 HOUR INFUSION ON DAY 1 OF 21 DAY CYCLE.
     Route: 042

REACTIONS (20)
  - Leukopenia [Unknown]
  - Blood disorder [Unknown]
  - Neutropenia [Unknown]
  - Back pain [Unknown]
  - Headache [Unknown]
  - Neuropathy peripheral [Unknown]
  - Peripheral sensory neuropathy [Unknown]
  - Myalgia [Unknown]
  - Fatigue [Unknown]
  - Aspartate aminotransferase increased [Unknown]
  - Arthralgia [Unknown]
  - Blood alkaline phosphatase increased [Unknown]
  - Hypokalaemia [Unknown]
  - Stomatitis [Unknown]
  - Rash [Unknown]
  - Dyspnoea [Unknown]
  - Abdominal pain [Unknown]
  - Bone pain [Unknown]
  - Hyponatraemia [Unknown]
  - Nausea [Unknown]
